FAERS Safety Report 9559829 (Version 1)
Quarter: 2013Q3

REPORT INFORMATION
  Report Type: Spontaneous
  Country: US (occurrence: US)
  Receive Date: 20130927
  Receipt Date: 20130927
  Transmission Date: 20140515
  Serious: Yes (Hospitalization)
  Sender: FDA-Public Use
  Company Number: US-JNJFOC-20130914149

PATIENT
  Age: 70 Year
  Sex: Female

DRUGS (2)
  1. INVOKANA [Suspect]
     Indication: TYPE 2 DIABETES MELLITUS
     Route: 048
     Dates: start: 201306
  2. LANTUS [Concomitant]

REACTIONS (2)
  - Diabetic ketoacidosis [Unknown]
  - Convulsion [Unknown]
